FAERS Safety Report 5363689-9 (Version None)
Quarter: 2007Q2

REPORT INFORMATION
  Report Type: 
  Country: None (occurrence: None)
  Receive Date: 20070620
  Receipt Date: 20070613
  Transmission Date: 20071010
  Serious: Yes (Hospitalization, Other)
  Sender: FDA-Public Use
  Company Number: BR-AVENTIS-200715380GDDC

PATIENT
  Age: 66 Year
  Sex: Female

DRUGS (3)
  1. DAONIL [Suspect]
     Dosage: DOSE: UNK
     Route: 048
  2. LASIX [Suspect]
     Dosage: DOSE: UNK
  3. HYDROCHLOROTHIAZIDE [Concomitant]
     Dosage: DOSE: UNK

REACTIONS (4)
  - ANURIA [None]
  - HYPOGLYCAEMIA [None]
  - SWELLING [None]
  - VOMITING [None]
